FAERS Safety Report 9140863 (Version 1)
Quarter: 2013Q1

REPORT INFORMATION
  Report Type: Report from Study
  Country: FR (occurrence: FR)
  Receive Date: 20130305
  Receipt Date: 20130305
  Transmission Date: 20140127
  Serious: Yes (Hospitalization, Other)
  Sender: FDA-Public Use
  Company Number: FR-ACTELION-A-CH2012-72915

PATIENT
  Age: 66 Year
  Sex: Female
  Weight: 70 kg

DRUGS (3)
  1. TRACLEER [Suspect]
     Indication: SKIN ULCER
     Dosage: 125 MG, BID
     Route: 048
     Dates: start: 20101004
  2. TRACLEER [Suspect]
     Dosage: 62.5 MG, BID
     Route: 048
     Dates: start: 20100908, end: 20101003
  3. SILDENAFIL [Concomitant]

REACTIONS (21)
  - Cardiopulmonary failure [Unknown]
  - Fluid retention [Unknown]
  - Electrolyte imbalance [Unknown]
  - Neuromyopathy [Unknown]
  - Pneumonia klebsiella [Unknown]
  - Lung disorder [Unknown]
  - Acute respiratory distress syndrome [Unknown]
  - Skin ulcer [Not Recovered/Not Resolved]
  - Infected skin ulcer [Not Recovered/Not Resolved]
  - Surgery [Not Recovered/Not Resolved]
  - Osteitis [Not Recovered/Not Resolved]
  - Septic shock [Unknown]
  - Vomiting [Unknown]
  - Decreased appetite [Unknown]
  - Dyspnoea [Unknown]
  - Hypoxia [Unknown]
  - Hypotension [Unknown]
  - Candida sepsis [Unknown]
  - Staphylococcal sepsis [Unknown]
  - Monoclonal gammopathy [Unknown]
  - Toxic skin eruption [Unknown]
